FAERS Safety Report 7451621-3 (Version None)
Quarter: 2011Q2

REPORT INFORMATION
  Report Type: 
  Country: None (occurrence: None)
  Receive Date: 20110502
  Receipt Date: 20100518
  Transmission Date: 20111010
  Serious: Yes (Hospitalization)
  Sender: FDA-Public Use
  Company Number: US-ASTRAZENECA-2007UW16902

PATIENT
  Age: 21 Year
  Sex: Male

DRUGS (2)
  1. NEXIUM [Suspect]
     Indication: GASTROOESOPHAGEAL REFLUX DISEASE
     Route: 048
  2. MEDICATIONS FOR MIGRAINES AND CELIAC DISEASE [Concomitant]

REACTIONS (8)
  - CONFUSIONAL STATE [None]
  - HEADACHE [None]
  - DRUG EFFECT DECREASED [None]
  - HELICOBACTER INFECTION [None]
  - AMNESIA [None]
  - NAUSEA [None]
  - DIZZINESS [None]
  - EYELID PTOSIS [None]
